FAERS Safety Report 16522913 (Version 1)
Quarter: 2019Q3

REPORT INFORMATION
  Report Type: Report from Study
  Country: DE (occurrence: DE)
  Receive Date: 20190703
  Receipt Date: 20190703
  Transmission Date: 20191004
  Serious: Yes (Other)
  Sender: FDA-Public Use
  Company Number: DE-ROCHE-2346390

PATIENT
  Age: 45 Year
  Sex: Female

DRUGS (3)
  1. BEVACIZUMAB. [Suspect]
     Active Substance: BEVACIZUMAB
     Indication: BREAST CANCER
     Dosage: DATE OF LAST DOSE (10 MG/KG): 22/MAY/2019
     Route: 065
     Dates: start: 20190522
  2. COBIMETINIB. [Suspect]
     Active Substance: COBIMETINIB
     Indication: BREAST CANCER
     Dosage: DATE OF LAST DOSE (60 MG): 05/JUN/2019
     Route: 065
     Dates: start: 20190522
  3. ATEZOLIZUMAB. [Suspect]
     Active Substance: ATEZOLIZUMAB
     Indication: BREAST CANCER
     Dosage: DATE OF LAST DOSE (1200 MG) OF ATEZOLIZUMAB: 22/MAY/2019
     Route: 042
     Dates: start: 20190522

REACTIONS (1)
  - Palpitations [Unknown]

NARRATIVE: CASE EVENT DATE: 20190625
